FAERS Safety Report 9914835 (Version 1)
Quarter: 2014Q1

REPORT INFORMATION
  Report Type: Spontaneous
  Country: NO (occurrence: NO)
  Receive Date: 20140220
  Receipt Date: 20140220
  Transmission Date: 20141002
  Serious: Yes (Hospitalization)
  Sender: FDA-Public Use
  Company Number: NO-US-EMD SERONO, INC.-E2B_7269146

PATIENT
  Age: 31 Year
  Sex: Female

DRUGS (1)
  1. PERGOTIME [Suspect]
     Indication: INFERTILITY FEMALE
     Dosage: 1 CYCLE = 50 MG DAILY FOR 5 DAYS. SEVERAL CYCLES FOR THE PAST SIX MONTHS. LAST CYCLE 20-25 NOV. 2013
     Route: 048
     Dates: start: 201306

REACTIONS (1)
  - Myositis [Recovering/Resolving]
